FAERS Safety Report 25724849 (Version 1)
Quarter: 2025Q3

REPORT INFORMATION
  Report Type: Report from Study
  Country: TH (occurrence: TH)
  Receive Date: 20250826
  Receipt Date: 20250826
  Transmission Date: 20251021
  Serious: Yes (Other)
  Sender: ROCHE
  Company Number: TH-ROCHE-10000364949

PATIENT
  Age: 74 Year
  Sex: Female
  Weight: 42.7 kg

DRUGS (2)
  1. TECENTRIQ [Suspect]
     Active Substance: ATEZOLIZUMAB
     Indication: Non-small cell lung cancer
     Route: 042
  2. AVASTIN [Suspect]
     Active Substance: BEVACIZUMAB
     Indication: Non-small cell lung cancer
     Route: 042

REACTIONS (7)
  - Neuropathy peripheral [Unknown]
  - Weight increased [Unknown]
  - Pleural neoplasm [Unknown]
  - Pulmonary embolism [Unknown]
  - Pulmonary embolism [Unknown]
  - Pulmonary mass [Unknown]
  - Bronchopulmonary aspergillosis [Unknown]
